FAERS Safety Report 17610867 (Version 1)
Quarter: 2020Q1

REPORT INFORMATION
  Report Type: Spontaneous
  Country: US (occurrence: US)
  Receive Date: 20200330
  Receipt Date: 20200330
  Transmission Date: 20200409
  Serious: No
  Sender: FDA-Public Use
  Company Number: None

PATIENT
  Age: 71 Year
  Sex: Male
  Weight: 106.14 kg

DRUGS (1)
  1. LIDOCAINE (LIDOCAINE HCL 2% (PF) INJ) [Suspect]
     Active Substance: LIDOCAINE
     Indication: DENTAL DISORDER PROPHYLAXIS
     Dates: start: 20191115, end: 20191115

REACTIONS (1)
  - Chest pain [None]

NARRATIVE: CASE EVENT DATE: 20191115
